FAERS Safety Report 24285095 (Version 1)
Quarter: 2024Q3

REPORT INFORMATION
  Report Type: Report from Study
  Country: ZA (occurrence: None)
  Receive Date: 20240905
  Receipt Date: 20240905
  Transmission Date: 20241016
  Serious: Yes (Hospitalization)
  Sender: ASTRAZENECA
  Company Number: 2024A197567

PATIENT
  Age: 28 Year
  Sex: Female

DRUGS (5)
  1. BUDESONIDE\FORMOTEROL [Suspect]
     Active Substance: BUDESONIDE\FORMOTEROL
     Indication: Asthma
     Dosage: 160/4.5 MCG, UNKNOWN UNKNOWN
     Route: 055
  2. ALLECET [Concomitant]
     Indication: Hypersensitivity
     Dosage: 10.0MG UNKNOWN
     Route: 048
  3. STOPAYNE [Concomitant]
     Indication: Pain
     Route: 048
  4. ALBUTEROL [Concomitant]
     Active Substance: ALBUTEROL
     Indication: Asthma
     Dosage: 100.0MG UNKNOWN
     Route: 055
  5. RINELON [Concomitant]
     Indication: Hypersensitivity
     Dosage: 50.0MG UNKNOWN
     Route: 045

REACTIONS (3)
  - Cardiac disorder [Unknown]
  - Illness [Unknown]
  - Product use issue [Unknown]
